FAERS Safety Report 7064063-X (Version None)
Quarter: 2010Q4

REPORT INFORMATION
  Report Type: 
  Country: None (occurrence: None)
  Receive Date: 20101027
  Receipt Date: 20101019
  Transmission Date: 20110411
  Serious: Yes (Hospitalization)
  Sender: FDA-Public Use
  Company Number: US-BIOGENIDEC-2010BI036078

PATIENT
  Age: 59 Year
  Sex: Female
  Weight: 58 kg

DRUGS (4)
  1. AVONEX [Suspect]
     Indication: MULTIPLE SCLEROSIS
     Route: 030
     Dates: start: 20030101
  2. GABAPENTIN [Concomitant]
     Indication: PAIN
     Route: 048
  3. OXYBUTYNIN [Concomitant]
     Indication: URINARY INCONTINENCE
     Route: 048
  4. CITALOPRAM HYDROBROMIDE [Concomitant]
     Indication: PRODUCT USED FOR UNKNOWN INDICATION
     Route: 048

REACTIONS (3)
  - OPTIC NEURITIS [None]
  - URINARY TRACT INFECTION [None]
  - VISION BLURRED [None]
